FAERS Safety Report 8503452-0 (Version None)
Quarter: 2012Q3

REPORT INFORMATION
  Report Type: 
  Country: None (occurrence: None)
  Receive Date: 20120711
  Receipt Date: 20120702
  Transmission Date: 20120928
  Serious: Yes (Hospitalization)
  Sender: FDA-Public Use
  Company Number: US-GLAXOSMITHKLINE-A0950726A

PATIENT
  Sex: Male

DRUGS (3)
  1. UNSPECIFIED MEDICATION [Suspect]
     Route: 065
  2. VOTRIENT [Suspect]
     Indication: PRODUCT USED FOR UNKNOWN INDICATION
     Dosage: 800MG PER DAY
     Route: 048
     Dates: start: 20110920
  3. RADIATION THERAPY [Concomitant]

REACTIONS (10)
  - LUNG DISORDER [None]
  - SKIN ULCER [None]
  - RHINORRHOEA [None]
  - PRURITUS [None]
  - FLUID RETENTION [None]
  - DRY SKIN [None]
  - COUGH [None]
  - ABDOMINAL PAIN UPPER [None]
  - DYSPNOEA [None]
  - RETCHING [None]
